FAERS Safety Report 15894828 (Version 1)
Quarter: 2019Q1

REPORT INFORMATION
  Report Type: Spontaneous
  Country: JP (occurrence: JP)
  Receive Date: 20190131
  Receipt Date: 20190131
  Transmission Date: 20190417
  Serious: Yes (Life-Threatening, Other)
  Sender: FDA-Public Use
  Company Number: JP-ROCHE-2217372

PATIENT
  Age: 82 Year
  Sex: Female
  Weight: 56 kg

DRUGS (12)
  1. DEXART [Concomitant]
     Active Substance: DEXAMETHASONE SODIUM PHOSPHATE
     Route: 065
     Dates: start: 20180709, end: 20181001
  2. NAIXAN [Concomitant]
     Active Substance: NAPROXEN SODIUM
     Route: 048
     Dates: start: 20180717
  3. DECADRON [Concomitant]
     Active Substance: DEXAMETHASONE
     Route: 048
     Dates: start: 20180710, end: 20181003
  4. XELODA [Suspect]
     Active Substance: CAPECITABINE
     Indication: COLON CANCER
     Route: 048
     Dates: start: 20180709, end: 20181015
  5. ALOXI [Concomitant]
     Active Substance: PALONOSETRON HYDROCHLORIDE
     Route: 041
     Dates: start: 20180709, end: 20181001
  6. HEPARINOID [Concomitant]
     Active Substance: CHONDROITIN SULFATE (BOVINE)
     Route: 065
     Dates: start: 20180709
  7. GLYCERIN. [Concomitant]
     Active Substance: GLYCERIN
     Route: 054
     Dates: start: 20180918
  8. AVASTIN [Suspect]
     Active Substance: BEVACIZUMAB
     Indication: COLON CANCER
     Route: 041
     Dates: start: 20180709, end: 20181001
  9. ELPLAT [Concomitant]
     Active Substance: OXALIPLATIN
     Indication: COLON CANCER
     Route: 041
     Dates: start: 20180709, end: 20181001
  10. VALSARTAN. [Concomitant]
     Active Substance: VALSARTAN
     Route: 048
     Dates: start: 20180820, end: 20181027
  11. MAGMITT [Concomitant]
     Active Substance: MAGNESIUM OXIDE
     Route: 048
     Dates: start: 20180827, end: 20181027
  12. AMLODIPINE BESILATE [Concomitant]
     Active Substance: AMLODIPINE BESYLATE
     Route: 048
     Dates: start: 20180820, end: 20181027

REACTIONS (2)
  - Peritonitis [Unknown]
  - Duodenal ulcer perforation [Recovering/Resolving]

NARRATIVE: CASE EVENT DATE: 20181023
